FAERS Safety Report 18802744 (Version 4)
Quarter: 2021Q1

REPORT INFORMATION
  Report Type: Spontaneous
  Country: DE (occurrence: FI)
  Receive Date: 20210128
  Receipt Date: 20210317
  Transmission Date: 20210419
  Serious: Yes (Hospitalization)
  Sender: FDA-Public Use
  Company Number: FI-ENDO PHARMACEUTICALS INC-2021-000771

PATIENT
  Age: 37 Year
  Sex: Male

DRUGS (2)
  1. AVEED [Suspect]
     Active Substance: TESTOSTERONE UNDECANOATE
     Indication: GONADAL DYSGENESIS
     Dosage: 1 DF, EVERY 4 WEEKS UNKNOWN
     Route: 065
     Dates: start: 2018
  2. AVEED [Suspect]
     Active Substance: TESTOSTERONE UNDECANOATE
     Dosage: 1 DF, EVERY 8 WEEKS UNKNOWN
     Route: 065

REACTIONS (7)
  - Injection site pain [Recovered/Resolved]
  - Injection site infection [Recovered/Resolved]
  - Wrong technique in product usage process [Unknown]
  - Scar [Not Recovered/Not Resolved]
  - Folliculitis [Recovered/Resolved]
  - Acne [Recovered/Resolved]
  - Hypertrichosis [Not Recovered/Not Resolved]

NARRATIVE: CASE EVENT DATE: 201807
